FAERS Safety Report 7919838-9 (Version None)
Quarter: 2011Q4

REPORT INFORMATION
  Report Type: 
  Country: None (occurrence: None)
  Receive Date: 20111117
  Receipt Date: 20111117
  Transmission Date: 20120403
  Serious: No
  Sender: FDA-Public Use
  Company Number: None

PATIENT
  Age: 77 Year
  Sex: Male
  Weight: 68.038 kg

DRUGS (2)
  1. PROPRANOLOL [Suspect]
  2. RISPERDAL [Concomitant]

REACTIONS (3)
  - DRUG ADMINISTRATION ERROR [None]
  - MEDICATION ERROR [None]
  - DRUG DISPENSING ERROR [None]
